FAERS Safety Report 13347255 (Version 1)
Quarter: 2017Q1

REPORT INFORMATION
  Report Type: Spontaneous
  Country: CA (occurrence: CA)
  Receive Date: 20170317
  Receipt Date: 20170317
  Transmission Date: 20170428
  Serious: Yes (Other)
  Sender: FDA-Public Use
  Company Number: CA-SHIRE-CA201705861

PATIENT
  Age: 42 Year
  Sex: Female
  Weight: 52.15 kg

DRUGS (1)
  1. MEZAVANT [Suspect]
     Active Substance: MESALAMINE
     Indication: COLITIS ULCERATIVE
     Dosage: 4.8 G, 1X/DAY:QD
     Route: 048

REACTIONS (2)
  - Erythema nodosum [Recovering/Resolving]
  - Dermatitis [Recovering/Resolving]
